FAERS Safety Report 9517457 (Version 2)
Quarter: 2013Q4

REPORT INFORMATION
  Report Type: Spontaneous
  Country: US (occurrence: US)
  Receive Date: 20130911
  Receipt Date: 20131114
  Transmission Date: 20140711
  Serious: Yes (Other)
  Sender: FDA-Public Use
  Company Number: US-ALLERGAN-1313462US

PATIENT
  Age: 21 Year
  Sex: Female

DRUGS (2)
  1. TAZORAC GEL 0.1% [Suspect]
     Indication: ACNE
     Dosage: UNK, QHS
     Route: 061
     Dates: start: 20120217
  2. CEPHALEXIN                         /00145501/ [Concomitant]
     Indication: ACNE
     Dosage: 500 MG, QD
     Route: 048

REACTIONS (2)
  - Abortion spontaneous [Unknown]
  - Pregnancy [Unknown]
